FAERS Safety Report 13749883 (Version 1)
Quarter: 2017Q3

REPORT INFORMATION
  Report Type: Spontaneous
  Country: US (occurrence: US)
  Receive Date: 20170713
  Receipt Date: 20170713
  Transmission Date: 20171127
  Serious: No
  Sender: FDA-Public Use
  Company Number: US-MYLANLABS-2016M1022934

PATIENT
  Sex: Male

DRUGS (2)
  1. CLOPIDOGREL TABLETS, USP [Suspect]
     Active Substance: CLOPIDOGREL BISULFATE
     Indication: ARTERIAL STENOSIS
     Dosage: 75 MG, QD
     Route: 048
     Dates: start: 201604
  2. CLOPIDOGREL TABLETS, USP [Suspect]
     Active Substance: CLOPIDOGREL BISULFATE
     Indication: CHEST PAIN

REACTIONS (1)
  - Fatigue [Not Recovered/Not Resolved]

NARRATIVE: CASE EVENT DATE: 201604
